FAERS Safety Report 23055591 (Version 2)
Quarter: 2023Q4

REPORT INFORMATION
  Report Type: Report from Study
  Country: AR (occurrence: AR)
  Receive Date: 20231011
  Receipt Date: 20231117
  Transmission Date: 20240110
  Serious: Yes (Other)
  Sender: FDA-Public Use
  Company Number: AR-002147023-NVSC2023AR002344

PATIENT
  Age: 46 Year
  Sex: Female

DRUGS (5)
  1. KISQALI [Suspect]
     Active Substance: RIBOCICLIB
     Indication: Breast cancer metastatic
     Dosage: 200 MG, QD
     Route: 048
     Dates: start: 20211022
  2. KISQALI [Suspect]
     Active Substance: RIBOCICLIB
     Dosage: 600 MG, QD
     Route: 048
     Dates: start: 20211022
  3. KISQALI [Suspect]
     Active Substance: RIBOCICLIB
     Dosage: UNK
     Route: 065
     Dates: start: 20211023
  4. LETROZOLE [Suspect]
     Active Substance: LETROZOLE
     Indication: Product used for unknown indication
     Dosage: UNK
     Route: 065
  5. LETROZOLE [Suspect]
     Active Substance: LETROZOLE
     Dosage: UNK UNK, QD
     Route: 048
     Dates: start: 20211023, end: 20231015

REACTIONS (10)
  - Malignant neoplasm progression [Unknown]
  - Breast cancer metastatic [Unknown]
  - Neoplasm malignant [Unknown]
  - Metastases to skin [Unknown]
  - Bronchitis [Recovering/Resolving]
  - Influenza [Unknown]
  - Cough [Not Recovered/Not Resolved]
  - Mass [Unknown]
  - Breast hyperplasia [Unknown]
  - Scar [Unknown]

NARRATIVE: CASE EVENT DATE: 20221201
